FAERS Safety Report 4582860-7 (Version None)
Quarter: 2005Q1

REPORT INFORMATION
  Report Type: 
  Country: None (occurrence: None)
  Receive Date: 20050121
  Receipt Date: 20041206
  Transmission Date: 20050727
  Serious: Yes (Other)
  Sender: FDA-Public Use
  Company Number: 2004109092

PATIENT
  Sex: Male

DRUGS (1)
  1. INSPRA [Suspect]
     Indication: HYPOKALAEMIA

REACTIONS (1)
  - DRUG INEFFECTIVE [None]
